FAERS Safety Report 6309107-5 (Version None)
Quarter: 2009Q3

REPORT INFORMATION
  Report Type: 
  Country: None (occurrence: None)
  Receive Date: 20090814
  Receipt Date: 20090730
  Transmission Date: 20100115
  Serious: Yes (Death, Hospitalization)
  Sender: FDA-Public Use
  Company Number: KR-ELI_LILLY_AND_COMPANY-KR200907006891

PATIENT
  Age: 58 Year
  Sex: Female

DRUGS (3)
  1. GEMZAR [Suspect]
     Indication: GALLBLADDER CANCER STAGE IV
     Dosage: 1200 MG/M2, OTHER (DAY 1 AND 8 OF A 21 DAY CYCLE)
     Route: 065
  2. CISPLATIN [Concomitant]
     Indication: GALLBLADDER CANCER STAGE IV
     Dosage: 60 MG/M2, OTHER (ON DAY 1 OF A  21 DAY CYCLE)
  3. CAPECITABINE [Concomitant]
     Indication: GALLBLADDER CANCER
     Dosage: UNK, UNKNOWN
     Route: 065

REACTIONS (2)
  - MALIGNANT NEOPLASM PROGRESSION [None]
  - REVERSIBLE POSTERIOR LEUKOENCEPHALOPATHY SYNDROME [None]
